FAERS Safety Report 8666822 (Version 4)
Quarter: 2016Q4

REPORT INFORMATION
  Report Type: Spontaneous
  Country: US (occurrence: US)
  Receive Date: 20120716
  Receipt Date: 20161011
  Transmission Date: 20170207
  Serious: Yes (Other)
  Sender: FDA-Public Use
  Company Number: US-ASTRAZENECA-2012SE47564

PATIENT
  Age: 51 Year
  Sex: Male

DRUGS (3)
  1. FARXIGA [Suspect]
     Active Substance: DAPAGLIFLOZIN PROPANEDIOL
     Indication: DIABETES MELLITUS
     Route: 048
     Dates: start: 20141021
  2. METFORMIN [Concomitant]
     Active Substance: METFORMIN HYDROCHLORIDE
  3. CRESTOR [Suspect]
     Active Substance: ROSUVASTATIN CALCIUM
     Route: 048

REACTIONS (5)
  - Hypertension [Unknown]
  - Blood glucose increased [Unknown]
  - Vision blurred [Unknown]
  - Intentional product misuse [Unknown]
  - Chest pain [Unknown]

NARRATIVE: CASE EVENT DATE: 20120710
